FAERS Safety Report 18770839 (Version 2)
Quarter: 2021Q3

REPORT INFORMATION
  Report Type: Spontaneous
  Country: US (occurrence: US)
  Receive Date: 20210122
  Receipt Date: 20210809
  Transmission Date: 20211014
  Serious: Yes (Other)
  Sender: FDA-Public Use
  Company Number: US-SA-2021SA012647

PATIENT
  Age: 57 Year
  Sex: Female
  Weight: 81.63 kg

DRUGS (3)
  1. TAXOTERE [Suspect]
     Active Substance: DOCETAXEL
     Dosage: UNK
     Dates: start: 20090917, end: 20090917
  2. TAXOTERE [Suspect]
     Active Substance: DOCETAXEL
     Indication: BREAST CANCER FEMALE
     Dosage: UNK UNK, QW
     Route: 065
     Dates: start: 20090910, end: 20090910
  3. TAXOL [Concomitant]
     Active Substance: PACLITAXEL
     Indication: BREAST CANCER FEMALE

REACTIONS (5)
  - Emotional distress [Unknown]
  - Anxiety [Unknown]
  - Pain [Unknown]
  - Alopecia [Not Recovered/Not Resolved]
  - Impaired quality of life [Unknown]

NARRATIVE: CASE EVENT DATE: 2009
